FAERS Safety Report 6089715-X (Version None)
Quarter: 2009Q1

REPORT INFORMATION
  Report Type: 
  Country: None (occurrence: None)
  Receive Date: 20090220
  Receipt Date: 20090220
  Transmission Date: 20090719
  Serious: Yes (Other)
  Sender: FDA-Public Use
  Company Number: None

PATIENT
  Sex: Male
  Weight: 88.4514 kg

DRUGS (1)
  1. LAMISIL [Suspect]
     Indication: ONYCHOMYCOSIS
     Dosage: AS PRESCRIBED ON LABEL PER LABEL PO
     Route: 048
     Dates: start: 20030601, end: 20030810

REACTIONS (2)
  - AGEUSIA [None]
  - FEAR [None]
